FAERS Safety Report 9104387 (Version 1)
Quarter: 2013Q1

REPORT INFORMATION
  Report Type: Spontaneous
  Country: US (occurrence: US)
  Receive Date: 20130219
  Receipt Date: 20130219
  Transmission Date: 20140127
  Serious: Yes (Other)
  Sender: FDA-Public Use
  Company Number: US-AMGEN-USASP2013010141

PATIENT
  Sex: Female

DRUGS (4)
  1. NEULASTA [Suspect]
     Indication: NEUTROPENIA
     Dosage: UNK
  2. TAXOTERE [Concomitant]
     Dosage: UNK
  3. ADRIAMYCIN                         /00330901/ [Concomitant]
     Dosage: UNK
  4. CYCLOPHOSPHAMIDE [Concomitant]
     Dosage: UNK

REACTIONS (1)
  - Blast cells present [Unknown]
